FAERS Safety Report 9132329 (Version 2)
Quarter: 2013Q2

REPORT INFORMATION
  Report Type: Spontaneous
  Country: TW (occurrence: TW)
  Receive Date: 20130301
  Receipt Date: 20130412
  Transmission Date: 20140414
  Serious: Yes (Death)
  Sender: FDA-Public Use
  Company Number: TW-BAXTER-2013BAX007325

PATIENT
  Sex: Female

DRUGS (12)
  1. DIANEAL LOW CALCIUM (2.5 MEQ/L) PD SOLUTION WITH 1.5% DEXTROSE ^BAXTER [Suspect]
     Indication: PERITONEAL DIALYSIS
     Route: 033
  2. DIANEAL LOW CALCIUM (2.5 MEQ/L) PD SOLUTION WITH 1.5% DEXTROSE ^BAXTER [Suspect]
     Indication: PERITONEAL DIALYSIS
  3. DIANEAL LOW CALCIUM (2.5 MEQ/L) PD SOLUTION WITH 2.5% DEXTROSE ^BAXTER [Suspect]
     Indication: PERITONEAL DIALYSIS
     Route: 033
  4. DIANEAL LOW CALCIUM (2.5 MEQ/L) PD SOLUTION WITH 2.5% DEXTROSE ^BAXTER [Suspect]
     Indication: PERITONEAL DIALYSIS
  5. DIANEAL LOW CALCIUM (2.5 MEQ/L) PD SOLUTION WITH 4.25% DEXTROSE ^BAXTE [Suspect]
     Indication: PERITONEAL DIALYSIS
     Route: 033
  6. DIANEAL LOW CALCIUM (2.5 MEQ/L) PD SOLUTION WITH 4.25% DEXTROSE ^BAXTE [Suspect]
     Indication: PERITONEAL DIALYSIS
  7. DIANEAL PD-2, PERITONEAL DIALYSIS SOLUTION WITH 1.5% DEXTROSE ^BAXTER^ [Suspect]
     Indication: PERITONEAL DIALYSIS
     Route: 033
  8. DIANEAL PD-2, PERITONEAL DIALYSIS SOLUTION WITH 1.5% DEXTROSE ^BAXTER^ [Suspect]
     Indication: PERITONEAL DIALYSIS
  9. DIANEAL PD-2, PERITONEAL DIALYSIS SOLUTION WITH 2.5% DEXTROSE ^BAXTER^ [Suspect]
     Indication: PERITONEAL DIALYSIS
     Route: 033
  10. DIANEAL PD-2, PERITONEAL DIALYSIS SOLUTION WITH 2.5% DEXTROSE ^BAXTER^ [Suspect]
     Indication: PERITONEAL DIALYSIS
  11. BAXTER EXTRANEAL PERITONEAL DIALYSIS SOLUTION WITH 7.5% ICODEXTRIN [Suspect]
     Indication: PERITONEAL DIALYSIS
     Route: 033
  12. BAXTER EXTRANEAL PERITONEAL DIALYSIS SOLUTION WITH 7.5% ICODEXTRIN [Suspect]
     Indication: PERITONEAL DIALYSIS

REACTIONS (1)
  - Sepsis [Fatal]
